FAERS Safety Report 6720563-0 (Version None)
Quarter: 2010Q2

REPORT INFORMATION
  Report Type: 
  Country: None (occurrence: None)
  Receive Date: 20100510
  Receipt Date: 20100430
  Transmission Date: 20101027
  Serious: Yes (Hospitalization, Other)
  Sender: FDA-Public Use
  Company Number: 2009SP037338

PATIENT
  Age: 29 Year
  Sex: Female
  Weight: 83.9154 kg

DRUGS (3)
  1. NUVARING [Suspect]
     Indication: MIGRAINE
     Dates: start: 20070501, end: 20071101
  2. TOPAMAX [Concomitant]
  3. IMITREX [Concomitant]

REACTIONS (18)
  - ANAEMIA [None]
  - ATELECTASIS [None]
  - BREAST ENLARGEMENT [None]
  - COAGULATION FACTOR V LEVEL DECREASED [None]
  - DRUG EXPOSURE DURING PREGNANCY [None]
  - HYPOKALAEMIA [None]
  - INTERNATIONAL NORMALISED RATIO INCREASED [None]
  - MIGRAINE [None]
  - NAUSEA [None]
  - PLEURAL EFFUSION [None]
  - PNEUMONIA [None]
  - PREGNANCY [None]
  - PRESYNCOPE [None]
  - PULMONARY EMBOLISM [None]
  - PULMONARY INFARCTION [None]
  - THROMBOSIS [None]
  - UPPER RESPIRATORY TRACT INFECTION [None]
  - VISION BLURRED [None]
